FAERS Safety Report 9398755 (Version 1)
Quarter: 2013Q3

REPORT INFORMATION
  Report Type: Spontaneous
  Country: US (occurrence: US)
  Receive Date: 20130712
  Receipt Date: 20130712
  Transmission Date: 20140515
  Serious: Yes (Other)
  Sender: FDA-Public Use
  Company Number: CHPA2012US021781

PATIENT
  Age: 62 Year
  Sex: Female

DRUGS (3)
  1. 4 WAY FAST ACTING NASAL SPRAY [Suspect]
     Indication: NASAL CONGESTION
     Dosage: UNK, PRN
     Route: 045
  2. EQUATE NASAL [Suspect]
     Indication: NASAL CONGESTION
     Dosage: UNK, UNK
     Route: 045
  3. ANTIASTHMATICS [Concomitant]
     Indication: ASTHMA
     Dosage: UNK, UNK

REACTIONS (8)
  - Tooth abscess [Not Recovered/Not Resolved]
  - Hypersensitivity [Unknown]
  - Dysphonia [Not Recovered/Not Resolved]
  - Nasal oedema [Unknown]
  - Nasal discomfort [Unknown]
  - Nasal congestion [Not Recovered/Not Resolved]
  - Disease recurrence [Not Recovered/Not Resolved]
  - Therapeutic response unexpected [Unknown]
